FAERS Safety Report 6734559-6 (Version None)
Quarter: 2010Q2

REPORT INFORMATION
  Report Type: 
  Country: None (occurrence: None)
  Receive Date: 20100520
  Receipt Date: 20100317
  Transmission Date: 20101027
  Serious: No
  Sender: FDA-Public Use
  Company Number: US-ALLERGAN-1002602US

PATIENT
  Age: 78 Year
  Sex: Female

DRUGS (6)
  1. SANCTURA XR [Suspect]
     Indication: HYPERTONIC BLADDER
     Dosage: 60 MG, QD
     Route: 048
     Dates: start: 20100101, end: 20100310
  2. LESCOL [Concomitant]
     Indication: BLOOD CHOLESTEROL INCREASED
  3. CALCIUM [Concomitant]
  4. DAILY VITAMINS [Concomitant]
  5. IRON [Concomitant]
  6. ASPIRIN [Concomitant]
     Dosage: 81 MG, QD

REACTIONS (7)
  - DRY EYE [None]
  - DRY MOUTH [None]
  - HEADACHE [None]
  - NASAL DISCOMFORT [None]
  - NASAL DRYNESS [None]
  - PRURITUS GENITAL [None]
  - VISION BLURRED [None]
